FAERS Safety Report 9344286 (Version 1)
Quarter: 2013Q2

REPORT INFORMATION
  Report Type: Report from Study
  Country: GB (occurrence: GB)
  Receive Date: 20130612
  Receipt Date: 20130612
  Transmission Date: 20140414
  Serious: Yes (Life-Threatening, Other)
  Sender: FDA-Public Use
  Company Number: GB-MERCK-1306GBR000336

PATIENT
  Age: 59 Year
  Sex: Male
  Weight: 120 kg

DRUGS (4)
  1. RIBAVIRIN [Suspect]
     Indication: HEPATITIS C
     Dosage: 600 MG, BID
     Route: 048
     Dates: start: 20120907
  2. RIBAVIRIN [Suspect]
     Dosage: 400 MG, BID
     Route: 048
     Dates: start: 20111125, end: 20111206
  3. PEGASYS [Suspect]
     Indication: HEPATITIS C
     Dosage: 180 MICROGRAM, QW
     Route: 058
     Dates: start: 20110907
  4. PEGASYS [Suspect]
     Dosage: 135 MICROGRAM, QW
     Route: 058
     Dates: start: 20111125, end: 20111206

REACTIONS (4)
  - Oedema peripheral [Recovered/Resolved]
  - Anaemia [Recovered/Resolved]
  - Ascites [Recovered/Resolved]
  - Neutropenia [Recovered/Resolved]
